FAERS Safety Report 10291524 (Version 2)
Quarter: 2014Q3

REPORT INFORMATION
  Report Type: Spontaneous
  Country: US (occurrence: US)
  Receive Date: 20140710
  Receipt Date: 20140710
  Transmission Date: 20150326
  Serious: No
  Sender: FDA-Public Use
  Company Number: US-PURDUE-USA-2013-0104935

PATIENT
  Sex: Male

DRUGS (1)
  1. BUTRANS [Suspect]
     Active Substance: BUPRENORPHINE
     Indication: PRODUCT USED FOR UNKNOWN INDICATION
     Dosage: 20 MCG/HR, WEEKLY
     Route: 062
     Dates: start: 201306

REACTIONS (9)
  - Drug administered at inappropriate site [Unknown]
  - Hyperhidrosis [Unknown]
  - Dizziness [Unknown]
  - Application site erythema [Unknown]
  - Application site pain [Unknown]
  - Application site irritation [Unknown]
  - Nausea [Unknown]
  - Heat exhaustion [Unknown]
  - Product adhesion issue [Unknown]

NARRATIVE: CASE EVENT DATE: 20130706
